FAERS Safety Report 5076608-X (Version None)
Quarter: 2006Q3

REPORT INFORMATION
  Report Type: 
  Country: None (occurrence: None)
  Receive Date: 20060810
  Receipt Date: 20060731
  Transmission Date: 20061208
  Serious: Yes (Other)
  Sender: FDA-Public Use
  Company Number: CA-BRISTOL-MYERS SQUIBB COMPANY-13460167

PATIENT
  Age: 12 Year
  Sex: Female

DRUGS (3)
  1. BLEOMYCIN SULFATE [Suspect]
     Indication: OVARIAN GERM CELL CANCER
  2. CISPLATIN [Suspect]
     Indication: OVARIAN GERM CELL CANCER
  3. ETOPOSIDE [Suspect]
     Indication: OVARIAN GERM CELL CANCER

REACTIONS (1)
  - AUTOIMMUNE THROMBOCYTOPENIA [None]
